FAERS Safety Report 7625664-0 (Version None)
Quarter: 2011Q3

REPORT INFORMATION
  Report Type: 
  Country: None (occurrence: None)
  Receive Date: 20110713
  Receipt Date: 20110705
  Transmission Date: 20111222
  Serious: Yes (Other)
  Sender: FDA-Public Use
  Company Number: UKP11000061

PATIENT
  Age: 39 Year
  Sex: Male

DRUGS (2)
  1. TACROLIMUS [Suspect]
     Indication: COLITIS ULCERATIVE
     Dosage: 1/DAY, ORAL
     Route: 048
  2. ASACOL [Suspect]
     Dosage: 1/DAY

REACTIONS (3)
  - OFF LABEL USE [None]
  - DEEP VEIN THROMBOSIS [None]
  - THROMBOPHLEBITIS [None]
